FAERS Safety Report 4926870-6 (Version None)
Quarter: 2006Q1

REPORT INFORMATION
  Report Type: 
  Country: None (occurrence: None)
  Receive Date: 20060228
  Receipt Date: 20050707
  Transmission Date: 20060701
  Serious: No
  Sender: FDA-Public Use
  Company Number: US-GLAXOSMITHKLINE-A0565340A

PATIENT
  Age: 58 Year
  Sex: Female

DRUGS (3)
  1. LAMICTAL [Suspect]
     Indication: DRUG USE FOR UNKNOWN INDICATION
     Dosage: 25MG PER DAY
     Route: 048
     Dates: start: 20050701
  2. NARDIL [Concomitant]
  3. XANAX [Concomitant]

REACTIONS (5)
  - DIZZINESS [None]
  - INSOMNIA [None]
  - POLLAKIURIA [None]
  - PSYCHOMOTOR HYPERACTIVITY [None]
  - TINNITUS [None]
